FAERS Safety Report 10178273 (Version 3)
Quarter: 2014Q3

REPORT INFORMATION
  Report Type: Spontaneous
  Country: JP (occurrence: JP)
  Receive Date: 20140519
  Receipt Date: 20140901
  Transmission Date: 20150326
  Serious: Yes (Hospitalization)
  Sender: FDA-Public Use
  Company Number: PHHY2014JP059394

PATIENT
  Age: 65 Year
  Sex: Male

DRUGS (1)
  1. ZOMETA [Suspect]
     Active Substance: ZOLEDRONIC ACID
     Indication: METASTASES TO BONE
     Dosage: 4 MG, PER ADMINISTRATION
     Route: 041
     Dates: start: 20130118, end: 20131004

REACTIONS (6)
  - Swelling [Unknown]
  - Exposed bone in jaw [Unknown]
  - Erythema [Unknown]
  - Osteonecrosis of jaw [Recovering/Resolving]
  - Gingivitis [Unknown]
  - Fistula [Unknown]

NARRATIVE: CASE EVENT DATE: 20131108
